FAERS Safety Report 14937599 (Version 4)
Quarter: 2020Q4

REPORT INFORMATION
  Report Type: Spontaneous
  Country: DE (occurrence: DE)
  Receive Date: 20180525
  Receipt Date: 20201006
  Transmission Date: 20210113
  Serious: Yes (Other)
  Sender: FDA-Public Use
  Company Number: PHHY2018DE003343

PATIENT
  Age: 61 Year
  Sex: Female
  Weight: 97 kg

DRUGS (5)
  1. METFORMIN HYDROCHLORIDE. [Suspect]
     Active Substance: METFORMIN HYDROCHLORIDE
     Indication: TYPE 2 DIABETES MELLITUS
     Dosage: 500 MG, BID
     Route: 065
  2. DAPAGLIFLOZIN. [Suspect]
     Active Substance: DAPAGLIFLOZIN
     Dosage: 10 MG, QD
     Route: 048
  3. DAPAGLIFLOZIN. [Suspect]
     Active Substance: DAPAGLIFLOZIN
     Indication: TYPE 2 DIABETES MELLITUS
     Dosage: UNK
     Route: 048
  4. METFORMIN HYDROCHLORIDE. [Suspect]
     Active Substance: METFORMIN HYDROCHLORIDE
     Dosage: NON-AZ PRODUCT, 1000 MG UNKNOWN
     Route: 065
  5. SITAGLIPTIN PHOSPHATE [Suspect]
     Active Substance: SITAGLIPTIN PHOSPHATE
     Indication: TYPE 2 DIABETES MELLITUS
     Dosage: 100 MG,QD
     Route: 048
     Dates: start: 2016

REACTIONS (10)
  - Visual impairment [Unknown]
  - Neuropathy peripheral [Unknown]
  - Sensory disturbance [Unknown]
  - Diabetes mellitus inadequate control [Unknown]
  - Pain in extremity [Unknown]
  - Gastrointestinal disorder [Recovered/Resolved]
  - Decreased vibratory sense [Unknown]
  - Sleep disorder [Unknown]
  - Limb discomfort [Unknown]
  - Temperature perception test abnormal [Unknown]

NARRATIVE: CASE EVENT DATE: 2016
